FAERS Safety Report 14869652 (Version 2)
Quarter: 2018Q2

REPORT INFORMATION
  Report Type: Spontaneous
  Country: US (occurrence: US)
  Receive Date: 20180509
  Receipt Date: 20180629
  Transmission Date: 20180711
  Serious: No
  Sender: FDA-Public Use
  Company Number: US-LUNDBECK-DKLU2048336

PATIENT
  Sex: Female
  Weight: 84 kg

DRUGS (5)
  1. NORTHERA [Suspect]
     Active Substance: DROXIDOPA
     Indication: AUTONOMIC NERVOUS SYSTEM IMBALANCE
     Route: 048
  2. NORTHERA [Suspect]
     Active Substance: DROXIDOPA
     Route: 048
  3. NORTHERA [Suspect]
     Active Substance: DROXIDOPA
     Route: 048
  4. NORTHERA [Suspect]
     Active Substance: DROXIDOPA
     Route: 048
  5. NORTHERA [Suspect]
     Active Substance: DROXIDOPA
     Route: 048
     Dates: start: 20180502

REACTIONS (6)
  - Dyspnoea [Recovered/Resolved]
  - Abdominal pain upper [Recovered/Resolved]
  - Fatigue [Recovered/Resolved]
  - Dizziness [Recovered/Resolved]
  - Chest pain [Recovered/Resolved]
  - Palpitations [Recovered/Resolved]
